FAERS Safety Report 26165333 (Version 1)
Quarter: 2025Q4

REPORT INFORMATION
  Report Type: Spontaneous
  Country: CN (occurrence: CN)
  Receive Date: 20251216
  Receipt Date: 20251216
  Transmission Date: 20260118
  Serious: Yes (Hospitalization)
  Sender: COHERUS
  Company Number: CN-SHANGHAI JUNSHI BIOSCIENCES CO., LTD.-CN2025016855

PATIENT

DRUGS (2)
  1. TORIPALIMAB [Suspect]
     Active Substance: TORIPALIMAB
     Indication: Lung squamous cell carcinoma stage IV
     Dosage: CYCLES 1-7
     Route: 065
     Dates: start: 2019
  2. TORIPALIMAB [Suspect]
     Active Substance: TORIPALIMAB
     Dosage: MAINTENANCE THERAPY
     Route: 065
     Dates: start: 2020

REACTIONS (1)
  - Tumour pseudoprogression [Recovering/Resolving]
